FAERS Safety Report 24569504 (Version 1)
Quarter: 2024Q4

REPORT INFORMATION
  Report Type: Spontaneous
  Country: US (occurrence: None)
  Receive Date: 20241030
  Receipt Date: 20241030
  Transmission Date: 20250115
  Serious: Yes (Disabling, Other)
  Sender: Public
  Company Number: None

PATIENT
  Age: 48 Year
  Sex: Female
  Weight: 88.2 kg

DRUGS (10)
  1. TERAZOSIN [Suspect]
     Active Substance: TERAZOSIN HYDROCHLORIDE
     Indication: Blood pressure measurement
     Dosage: OTHER QUANTITY : 1 CAPSULE(S);?FREQUENCY : AT BEDTIME;?
     Route: 048
     Dates: start: 20220815, end: 20241029
  2. ZOLOFT [Concomitant]
     Active Substance: SERTRALINE HYDROCHLORIDE
  3. BACLOFEN [Concomitant]
     Active Substance: BACLOFEN
  4. GABAPENTIN [Concomitant]
     Active Substance: GABAPENTIN
  5. SINGULAIR [Concomitant]
     Active Substance: MONTELUKAST SODIUM
  6. norvase [Concomitant]
  7. HYDROCHLOROTHIAZIDE [Concomitant]
     Active Substance: HYDROCHLOROTHIAZIDE
  8. LOSARTAN [Concomitant]
     Active Substance: LOSARTAN
  9. celabrex [Concomitant]
  10. ASPIRIN [Concomitant]
     Active Substance: ASPIRIN

REACTIONS (16)
  - Urticaria [None]
  - Gingival recession [None]
  - Tooth loss [None]
  - Headache [None]
  - Hyperhidrosis [None]
  - Nasopharyngitis [None]
  - Dizziness [None]
  - Vision blurred [None]
  - Memory impairment [None]
  - Dyspepsia [None]
  - Burning sensation [None]
  - Rhinorrhoea [None]
  - Arthralgia [None]
  - Ear pain [None]
  - Alopecia [None]
  - Insomnia [None]

NARRATIVE: CASE EVENT DATE: 20220815
